FAERS Safety Report 21896995 (Version 1)
Quarter: 2023Q1

REPORT INFORMATION
  Report Type: Spontaneous
  Country: US (occurrence: US)
  Receive Date: 20230123
  Receipt Date: 20230123
  Transmission Date: 20230418
  Serious: No
  Sender: FDA-Public Use
  Company Number: US-PERRIGO-22US008624

PATIENT
  Age: 1 Year
  Sex: Female
  Weight: 9.524 kg

DRUGS (1)
  1. IBUPROFEN [Suspect]
     Active Substance: IBUPROFEN
     Indication: Pyrexia
     Dosage: 72 MG, SINGLE
     Route: 048
     Dates: start: 20220614, end: 20220614

REACTIONS (2)
  - Exposure to unspecified agent [Recovered/Resolved]
  - Expired product administered [Recovered/Resolved]

NARRATIVE: CASE EVENT DATE: 20220614
